FAERS Safety Report 14096665 (Version 7)
Quarter: 2018Q2

REPORT INFORMATION
  Report Type: Spontaneous
  Country: US (occurrence: US)
  Receive Date: 20171017
  Receipt Date: 20180514
  Transmission Date: 20180711
  Serious: Yes (Other)
  Sender: FDA-Public Use
  Company Number: PHEH2017US033611

PATIENT
  Age: 25 Year
  Sex: Female

DRUGS (4)
  1. ZOFRAN [Suspect]
     Active Substance: ONDANSETRON HYDROCHLORIDE
     Indication: VOMITING IN PREGNANCY
     Dosage: 8 MG, QD
     Route: 042
     Dates: start: 20140429, end: 20140429
  2. ZOFRAN [Suspect]
     Active Substance: ONDANSETRON HYDROCHLORIDE
     Dosage: 4 MG, QD
     Route: 042
     Dates: start: 20140511, end: 20140511
  3. ZOFRAN [Suspect]
     Active Substance: ONDANSETRON HYDROCHLORIDE
     Indication: VOMITING IN PREGNANCY
     Dosage: 1 DF, Q8H, PRN
     Route: 048
  4. ONDANSETRON HYDROCHLORIDE. [Suspect]
     Active Substance: ONDANSETRON HYDROCHLORIDE
     Indication: VOMITING IN PREGNANCY
     Dosage: 1 DF, Q8H, AS NEEDED
     Route: 065
     Dates: start: 20140416, end: 20140420

REACTIONS (13)
  - Maternal exposure during pregnancy [Unknown]
  - Injury [Unknown]
  - Seizure [Unknown]
  - Asthma [Unknown]
  - Abdominal pain [Unknown]
  - Dysuria [Unknown]
  - Premature delivery [Unknown]
  - Pelvic pain [Unknown]
  - Urinary tract infection [Unknown]
  - Dyspepsia [Unknown]
  - Irritability [Unknown]
  - Breast tenderness [Unknown]
  - Product use in unapproved indication [Unknown]

NARRATIVE: CASE EVENT DATE: 20141106
